FAERS Safety Report 17724982 (Version 1)
Quarter: 2020Q2

REPORT INFORMATION
  Report Type: Spontaneous
  Country: US (occurrence: US)
  Receive Date: 20200429
  Receipt Date: 20200429
  Transmission Date: 20200714
  Serious: Yes (Other)
  Sender: FDA-Public Use
  Company Number: None

PATIENT
  Age: 35 Year
  Weight: 71.55 kg

DRUGS (14)
  1. LEVOTHYROXINE. [Concomitant]
     Active Substance: LEVOTHYROXINE
  2. ACIDOPHILUS [Concomitant]
     Active Substance: LACTOBACILLUS ACIDOPHILUS
  3. FOLIC ACID. [Concomitant]
     Active Substance: FOLIC ACID
  4. MULTIVITAMIN+OMEGA [Concomitant]
  5. BIOTIN [Concomitant]
     Active Substance: BIOTIN
  6. FIBERWELL GUMMIES [Concomitant]
  7. FAMOTIDINE 20MG, TWICE DAILY [Suspect]
     Active Substance: FAMOTIDINE
     Indication: OESOPHAGEAL ULCER
     Dates: start: 20191211, end: 20200331
  8. CITRACAL [Concomitant]
     Active Substance: CALCIUM CITRATE
  9. ZINC. [Concomitant]
     Active Substance: ZINC
  10. VITAMIN D3 [Concomitant]
     Active Substance: CHOLECALCIFEROL
  11. ASPIRIN 81MG [Concomitant]
     Active Substance: ASPIRIN
  12. LANSOPRAZOLE. [Concomitant]
     Active Substance: LANSOPRAZOLE
  13. VITAMIN B12 [Concomitant]
     Active Substance: CYANOCOBALAMIN
  14. PHILIPS STOOL SOFTNER [Concomitant]

REACTIONS (1)
  - Amnesia [None]

NARRATIVE: CASE EVENT DATE: 20200331
